FAERS Safety Report 15225007 (Version 1)
Quarter: 2018Q3

REPORT INFORMATION
  Report Type: Report from Study
  Country: None (occurrence: US)
  Receive Date: 20180801
  Receipt Date: 20180801
  Transmission Date: 20181010
  Serious: Yes (Other)
  Sender: FDA-Public Use
  Company Number: US-ABBVIE-18S-163-2430861-00

PATIENT
  Age: 53 Year
  Sex: Male

DRUGS (1)
  1. CREON [Suspect]
     Active Substance: PANCRELIPASE AMYLASE\PANCRELIPASE LIPASE\PANCRELIPASE PROTEASE
     Indication: PRODUCT USED FOR UNKNOWN INDICATION
     Route: 048

REACTIONS (7)
  - Hip arthroplasty [Unknown]
  - Oesophageal dilatation [Unknown]
  - Unevaluable event [Unknown]
  - Spermatic cord operation [Unknown]
  - Intervertebral disc operation [Unknown]
  - Nasal septum deviation [Unknown]
  - Hernia [Unknown]

NARRATIVE: CASE EVENT DATE: 20180720
